FAERS Safety Report 12909306 (Version 1)
Quarter: 2016Q4

REPORT INFORMATION
  Report Type: Spontaneous
  Country: VN (occurrence: VN)
  Receive Date: 20161104
  Receipt Date: 20161104
  Transmission Date: 20170207
  Serious: Yes (Other)
  Sender: FDA-Public Use
  Company Number: VN-ROCHE-1849400

PATIENT
  Age: 5 Month
  Sex: Male

DRUGS (1)
  1. CEFTRIAXONE. [Suspect]
     Active Substance: CEFTRIAXONE
     Indication: MENINGITIS PNEUMOCOCCAL
     Route: 065

REACTIONS (3)
  - Feeling abnormal [Recovered/Resolved]
  - Seizure [Recovered/Resolved]
  - Drug resistance [Unknown]
